FAERS Safety Report 11246964 (Version 1)
Quarter: 2015Q3

REPORT INFORMATION
  Report Type: Spontaneous
  Country: US (occurrence: None)
  Receive Date: 20150706
  Receipt Date: 20150706
  Transmission Date: 20151125
  Serious: Yes (Life-Threatening)
  Sender: FDA-Public Use
  Company Number: None

PATIENT
  Age: 70 Year
  Sex: Female
  Weight: 108 kg

DRUGS (16)
  1. XOPENEX [Concomitant]
     Active Substance: LEVALBUTEROL HYDROCHLORIDE
  2. PROTAMINE [Suspect]
     Active Substance: PROTAMINE
     Indication: POSTOPERATIVE CARE
     Route: 042
  3. VERSED [Concomitant]
     Active Substance: MIDAZOLAM HYDROCHLORIDE
  4. HEPARIN [Concomitant]
     Active Substance: HEPARIN SODIUM
  5. AMLODIPINE [Concomitant]
     Active Substance: AMLODIPINE BESYLATE
  6. MVI [Concomitant]
     Active Substance: VITAMINS
  7. NTG [Concomitant]
     Active Substance: NITROGLYCERIN
  8. ATROVENT [Concomitant]
     Active Substance: IPRATROPIUM BROMIDE
  9. PROTAMINE [Suspect]
     Active Substance: PROTAMINE
     Indication: ANTICOAGULANT THERAPY
     Route: 042
  10. ASA [Concomitant]
     Active Substance: ASPIRIN
  11. VISIPAQUE [Concomitant]
     Active Substance: IODIXANOL
  12. LISINOPRIL. [Concomitant]
     Active Substance: LISINOPRIL
  13. SPIRIVA [Concomitant]
     Active Substance: TIOTROPIUM BROMIDE MONOHYDRATE
  14. MUPIROCIN. [Concomitant]
     Active Substance: MUPIROCIN
  15. ZOLOFT [Concomitant]
     Active Substance: SERTRALINE HYDROCHLORIDE
  16. FENTANYL. [Concomitant]
     Active Substance: FENTANYL

REACTIONS (5)
  - Anaphylactic reaction [None]
  - Acute respiratory failure [None]
  - Respiratory acidosis [None]
  - Product quality issue [None]
  - Pulmonary oedema [None]

NARRATIVE: CASE EVENT DATE: 20150629
